FAERS Safety Report 4443824-7 (Version None)
Quarter: 2004Q3

REPORT INFORMATION
  Report Type: 
  Country: None (occurrence: None)
  Receive Date: 20040802
  Receipt Date: 20040615
  Transmission Date: 20050211
  Serious: Yes (Hospitalization)
  Sender: FDA-Public Use
  Company Number: 2004-117251-NL

PATIENT
  Age: 27 Year
  Sex: Female
  Weight: 63.6 kg

DRUGS (2)
  1. NUVARING [Suspect]
     Indication: CONTRACEPTION
     Dosage: DF DAILY VAGINAL
     Route: 067
     Dates: start: 20040607, end: 20040615
  2. TRANSDERMAL CONTRACEPTIVE PATCH [Concomitant]

REACTIONS (6)
  - BACK PAIN [None]
  - BLOOD POTASSIUM DECREASED [None]
  - CHILLS [None]
  - PELVIC PAIN [None]
  - PYREXIA [None]
  - URINARY TRACT INFECTION [None]
